FAERS Safety Report 7937038-3 (Version None)
Quarter: 2011Q4

REPORT INFORMATION
  Report Type: 
  Country: None (occurrence: None)
  Receive Date: 20111123
  Receipt Date: 20111121
  Transmission Date: 20120403
  Serious: Yes (Hospitalization)
  Sender: FDA-Public Use
  Company Number: FR-EISAI INC-E2090-01863-SPO-FR

PATIENT
  Sex: Male

DRUGS (8)
  1. CLONAZEPAM [Concomitant]
     Route: 048
  2. IMOVANE [Concomitant]
     Route: 048
  3. ZONEGRAN [Suspect]
     Indication: EPILEPSY
     Dosage: UNKNOWN
     Route: 048
     Dates: end: 20110401
  4. ZONEGRAN [Suspect]
     Dosage: DOSE REDUCED
     Route: 048
     Dates: start: 20110401, end: 20110420
  5. KEPPRA [Concomitant]
     Route: 048
  6. RISPERDAL [Concomitant]
     Route: 048
  7. LEVOTHYROXINE SODIUM [Concomitant]
     Route: 048
  8. DEPAKENE [Concomitant]
     Dosage: 500 MG DAILY
     Route: 048

REACTIONS (2)
  - PYELONEPHRITIS ACUTE [None]
  - CALCULUS URINARY [None]
